FAERS Safety Report 15890668 (Version 3)
Quarter: 2019Q3

REPORT INFORMATION
  Report Type: Spontaneous
  Country: US (occurrence: US)
  Receive Date: 20190130
  Receipt Date: 20190906
  Transmission Date: 20191004
  Serious: Yes (Death, Other)
  Sender: FDA-Public Use
  Company Number: US-TAKEDA-2019TUS003471

PATIENT

DRUGS (20)
  1. ATROPIN                            /00002801/ [Concomitant]
     Active Substance: ATROPINE
  2. AZITHROMYCIN ANHYDROUS. [Concomitant]
     Active Substance: AZITHROMYCIN ANHYDROUS
  3. ACTOS [Concomitant]
     Active Substance: PIOGLITAZONE HYDROCHLORIDE
  4. SENSIPAR [Concomitant]
     Active Substance: CINACALCET HYDROCHLORIDE
  5. CARVEDILOL. [Concomitant]
     Active Substance: CARVEDILOL
  6. HYDROXINE [Concomitant]
     Active Substance: HYDROXYZINE HYDROCHLORIDE
  7. LOSARTAN. [Concomitant]
     Active Substance: LOSARTAN
  8. PROPULSID [Concomitant]
     Active Substance: CISAPRIDE
  9. NEXIUM [Suspect]
     Active Substance: ESOMEPRAZOLE MAGNESIUM
     Indication: PRODUCT USED FOR UNKNOWN INDICATION
     Dosage: UNK
     Route: 048
     Dates: start: 199501, end: 201210
  10. CEPHALEXIN                         /00145501/ [Concomitant]
     Active Substance: CEPHALEXIN
  11. CEFDINIR. [Concomitant]
     Active Substance: CEFDINIR
  12. GLUCOTROL [Concomitant]
     Active Substance: GLIPIZIDE
  13. PREVACID [Suspect]
     Active Substance: LANSOPRAZOLE
     Indication: PRODUCT USED FOR UNKNOWN INDICATION
     Dosage: UNK
     Route: 048
     Dates: start: 199501, end: 201210
  14. AMLODIPINE [Concomitant]
     Active Substance: AMLODIPINE BESYLATE
  15. BENZONATATE. [Concomitant]
     Active Substance: BENZONATATE
  16. NORVASC [Concomitant]
     Active Substance: AMLODIPINE BESYLATE
  17. METOPROLOL. [Concomitant]
     Active Substance: METOPROLOL
  18. FERROUS SULFATE. [Concomitant]
     Active Substance: FERROUS SULFATE
  19. ONDANSETRON [Concomitant]
     Active Substance: ONDANSETRON
  20. TRIAMTERENE. [Concomitant]
     Active Substance: TRIAMTERENE

REACTIONS (2)
  - End stage renal disease [Fatal]
  - Chronic kidney disease [Fatal]
